FAERS Safety Report 16154401 (Version 1)
Quarter: 2019Q2

REPORT INFORMATION
  Report Type: Spontaneous
  Country: US (occurrence: US)
  Receive Date: 20190403
  Receipt Date: 20190403
  Transmission Date: 20190711
  Serious: No
  Sender: FDA-Public Use
  Company Number: US-EMD SERONO-9081234

PATIENT
  Age: 53 Year
  Sex: Female

DRUGS (1)
  1. REBIF [Suspect]
     Active Substance: INTERFERON BETA-1A
     Indication: MULTIPLE SCLEROSIS
     Dosage: 0.5 ML
     Route: 058
     Dates: start: 201802

REACTIONS (22)
  - Pain [Unknown]
  - Paraesthesia [Unknown]
  - Memory impairment [Unknown]
  - Muscle spasms [Unknown]
  - Arthralgia [Unknown]
  - Nocturia [Unknown]
  - Dyspnoea [Unknown]
  - Dizziness [Unknown]
  - Eye pain [Unknown]
  - Grip strength decreased [Unknown]
  - Pain in extremity [Unknown]
  - Gait disturbance [Unknown]
  - Muscle contractions involuntary [Unknown]
  - Vision blurred [Unknown]
  - Back pain [Unknown]
  - Joint stiffness [Unknown]
  - Depression [Unknown]
  - Fatigue [Unknown]
  - Peripheral swelling [Unknown]
  - Muscular weakness [Unknown]
  - Hypoaesthesia [Unknown]
  - Anxiety [Unknown]

NARRATIVE: CASE EVENT DATE: 20180901
